FAERS Safety Report 21200678 (Version 4)
Quarter: 2022Q3

REPORT INFORMATION
  Report Type: Spontaneous
  Country: US (occurrence: US)
  Receive Date: 20220811
  Receipt Date: 20220928
  Transmission Date: 20221027
  Serious: Yes (Hospitalization, Disabling, Other)
  Sender: FDA-Public Use
  Company Number: US-Blueprint Medicines Corporation-SP-US-2022-002510

PATIENT
  Age: 83 Year
  Sex: Female
  Weight: 64.8 kg

DRUGS (15)
  1. AYVAKIT [Suspect]
     Active Substance: AVAPRITINIB
     Indication: Gastrointestinal stromal tumour
     Route: 048
     Dates: start: 20220430
  2. AYVAKIT [Suspect]
     Active Substance: AVAPRITINIB
     Route: 048
     Dates: start: 20220502, end: 20220525
  3. AYVAKIT [Suspect]
     Active Substance: AVAPRITINIB
     Route: 048
     Dates: start: 20220526, end: 20220624
  4. AYVAKIT [Suspect]
     Active Substance: AVAPRITINIB
     Route: 048
     Dates: start: 20220720, end: 20220803
  5. AYVAKIT [Suspect]
     Active Substance: AVAPRITINIB
     Route: 048
     Dates: start: 20220816
  6. AYVAKIT [Suspect]
     Active Substance: AVAPRITINIB
     Route: 065
  7. LIPITOR [Concomitant]
     Active Substance: ATORVASTATIN CALCIUM
     Indication: Product used for unknown indication
     Route: 048
  8. CYANOCOBALAMIN [Concomitant]
     Active Substance: CYANOCOBALAMIN
     Indication: Product used for unknown indication
     Route: 048
  9. PEPCID [Concomitant]
     Active Substance: FAMOTIDINE
     Indication: Product used for unknown indication
     Route: 048
  10. FLONASE [Concomitant]
     Active Substance: FLUTICASONE PROPIONATE
     Indication: Product used for unknown indication
     Route: 045
     Dates: start: 20170401
  11. LASIX [Concomitant]
     Active Substance: FUROSEMIDE
     Indication: Product used for unknown indication
     Route: 048
     Dates: start: 20220624
  12. AMARYL [Concomitant]
     Active Substance: GLIMEPIRIDE
     Indication: Product used for unknown indication
     Route: 048
  13. PRINIVIL [Concomitant]
     Active Substance: LISINOPRIL
     Indication: Essential hypertension
     Route: 048
     Dates: start: 20170614
  14. KLOR-CON SPRINKLE [Concomitant]
     Active Substance: POTASSIUM CHLORIDE
     Indication: Product used for unknown indication
     Route: 048
     Dates: start: 20220624
  15. COMPAZINE [Concomitant]
     Active Substance: PROCHLORPERAZINE MALEATE
     Indication: Nausea
     Route: 048
     Dates: start: 20220525

REACTIONS (35)
  - Ascites [Unknown]
  - Malaise [Not Recovered/Not Resolved]
  - Lymphopenia [Not Recovered/Not Resolved]
  - Mental status changes [Recovered/Resolved with Sequelae]
  - Leukopenia [Not Recovered/Not Resolved]
  - Eye pruritus [Not Recovered/Not Resolved]
  - Photophobia [Recovered/Resolved]
  - Gait disturbance [Unknown]
  - Back pain [Unknown]
  - Neck pain [Unknown]
  - Orbital oedema [Recovering/Resolving]
  - Peripheral swelling [Recovering/Resolving]
  - Confusional state [Recovering/Resolving]
  - Asthenia [Not Recovered/Not Resolved]
  - Somnolence [Not Recovered/Not Resolved]
  - Eye swelling [Recovering/Resolving]
  - Swelling face [Recovering/Resolving]
  - Anxiety [Unknown]
  - Dizziness [Unknown]
  - Nausea [Unknown]
  - Vomiting [Unknown]
  - Headache [Unknown]
  - Face oedema [Recovering/Resolving]
  - Lacrimation increased [Recovering/Resolving]
  - Abdominal pain [Recovered/Resolved]
  - Oedema [Recovering/Resolving]
  - Ageusia [Unknown]
  - Blood bilirubin increased [Unknown]
  - Fatigue [Not Recovered/Not Resolved]
  - Anaemia [Unknown]
  - Blood magnesium decreased [Unknown]
  - Memory impairment [Not Recovered/Not Resolved]
  - Nervousness [Not Recovered/Not Resolved]
  - Dysuria [Recovered/Resolved]
  - Accidental overdose [Unknown]

NARRATIVE: CASE EVENT DATE: 20220506
